FAERS Safety Report 7642014-4 (Version None)
Quarter: 2011Q3

REPORT INFORMATION
  Report Type: 
  Country: None (occurrence: None)
  Receive Date: 20110728
  Receipt Date: 20110722
  Transmission Date: 20111222
  Serious: Yes (Other)
  Sender: FDA-Public Use
  Company Number: US-PFIZER INC-2011141063

PATIENT
  Sex: Female

DRUGS (4)
  1. GLUCOTROL XL [Suspect]
     Dosage: UNK
  2. CARDURA [Suspect]
     Dosage: UNK
  3. NEURONTIN [Suspect]
     Dosage: UNK
  4. LIPITOR [Suspect]
     Dosage: UNK

REACTIONS (1)
  - DEAFNESS [None]
